FAERS Safety Report 8317869 (Version 7)
Quarter: 2013Q1

REPORT INFORMATION
  Report Type: Spontaneous
  Country: US (occurrence: US)
  Receive Date: 20120102
  Receipt Date: 20130123
  Transmission Date: 20140127
  Serious: Yes (Hospitalization, Other)
  Sender: FDA-Public Use
  Company Number: PHEH2011US012723

PATIENT
  Age: 58 Year
  Sex: Female

DRUGS (6)
  1. GILENYA [Suspect]
     Dosage: 0.5 MG, UNK
     Route: 048
     Dates: start: 201102, end: 20111229
  2. MULTIHANCE [Concomitant]
     Dosage: 20 ML, UNK
     Route: 042
  3. OXYBUTYNIN [Concomitant]
     Dosage: 5 MG, UNK
  4. DETROL [Concomitant]
     Dosage: UNK UKN, UNK
  5. PREDNISONE [Concomitant]
     Dosage: 500 MG, UNK
  6. VITAMIN D3 [Concomitant]
     Dosage: UNK UKN, UNK

REACTIONS (15)
  - Posterior reversible encephalopathy syndrome [Recovered/Resolved]
  - Convulsion [Recovering/Resolving]
  - Headache [Recovering/Resolving]
  - Somnolence [Recovering/Resolving]
  - Cognitive disorder [Recovering/Resolving]
  - Mental status changes [Recovered/Resolved]
  - Lethargy [Recovering/Resolving]
  - Confusional state [Recovering/Resolving]
  - Central nervous system lesion [Recovering/Resolving]
  - Hypertension [Recovering/Resolving]
  - Abasia [Unknown]
  - Hemiparesis [Recovering/Resolving]
  - Encephalopathy [Recovering/Resolving]
  - Psychotic disorder [Recovering/Resolving]
  - Hallucination [Recovering/Resolving]
